FAERS Safety Report 6159309-6 (Version None)
Quarter: 2009Q2

REPORT INFORMATION
  Report Type: 
  Country: None (occurrence: None)
  Receive Date: 20090417
  Receipt Date: 20090407
  Transmission Date: 20091009
  Serious: Yes (Hospitalization)
  Sender: FDA-Public Use
  Company Number: FR-SANOFI-SYNTHELABO-A02200900924

PATIENT
  Sex: Female

DRUGS (5)
  1. IMOVANE [Concomitant]
     Dosage: UNK
     Route: 048
  2. XANAX [Concomitant]
     Dosage: UNK
     Route: 048
  3. PROZAC [Concomitant]
     Dosage: UNK
     Route: 048
  4. GEMZAR [Suspect]
     Indication: BILE DUCT CANCER
     Route: 041
     Dates: start: 20090216, end: 20090216
  5. ELOXATIN [Suspect]
     Indication: BILE DUCT CANCER
     Route: 041
     Dates: start: 20090216, end: 20090216

REACTIONS (1)
  - CYTOLYTIC HEPATITIS [None]
